FAERS Safety Report 21485722 (Version 2)
Quarter: 2022Q4

REPORT INFORMATION
  Report Type: Report from Study
  Country: PR (occurrence: PR)
  Receive Date: 20221020
  Receipt Date: 20221221
  Transmission Date: 20230113
  Serious: No
  Sender: FDA-Public Use
  Company Number: PR-ABBVIE-4163580

PATIENT
  Sex: Male
  Weight: 75.7 kg

DRUGS (1)
  1. VENCLEXTA [Suspect]
     Active Substance: VENETOCLAX
     Indication: Acute myeloid leukaemia
     Route: 048
     Dates: start: 20220929

REACTIONS (4)
  - Diabetes mellitus inadequate control [Unknown]
  - Platelet count decreased [Unknown]
  - Pyrexia [Unknown]
  - White blood cell count increased [Unknown]
